FAERS Safety Report 19079059 (Version 1)
Quarter: 2021Q1

REPORT INFORMATION
  Report Type: Spontaneous
  Country: US (occurrence: US)
  Receive Date: 20210331
  Receipt Date: 20210331
  Transmission Date: 20210420
  Serious: No
  Sender: FDA-Public Use
  Company Number: US-PFIZER INC-2021337040

PATIENT
  Age: 62 Year
  Sex: Female

DRUGS (1)
  1. XELJANZ XR [Suspect]
     Active Substance: TOFACITINIB CITRATE
     Dosage: 11 MG
     Dates: start: 20201223

REACTIONS (7)
  - Heart rate increased [Recovered/Resolved]
  - Skin exfoliation [Not Recovered/Not Resolved]
  - Tinnitus [Not Recovered/Not Resolved]
  - Dizziness [Unknown]
  - Product dose omission issue [Unknown]
  - Musculoskeletal stiffness [Unknown]
  - Breakthrough pain [Unknown]

NARRATIVE: CASE EVENT DATE: 2021
